FAERS Safety Report 15473998 (Version 2)
Quarter: 2019Q1

REPORT INFORMATION
  Report Type: Spontaneous
  Country: US (occurrence: US)
  Receive Date: 20181008
  Receipt Date: 20190301
  Transmission Date: 20190417
  Serious: Yes (Other)
  Sender: FDA-Public Use
  Company Number: US-SA-2018SA275562

PATIENT
  Age: 52 Year
  Sex: Female
  Weight: 99 kg

DRUGS (8)
  1. PARAPLATIN [Concomitant]
     Active Substance: CARBOPLATIN
     Dosage: UNK
     Route: 065
  2. TRASTUZUMAB. [Concomitant]
     Active Substance: TRASTUZUMAB
     Route: 065
  3. DECADRON [DEXAMETHASONE SODIUM PHOSPHATE] [Concomitant]
     Route: 065
  4. TAXOTERE [Suspect]
     Active Substance: DOCETAXEL
     Indication: BREAST CANCER FEMALE
     Dosage: 158.2 MG, Q3W
     Route: 042
     Dates: start: 20130110, end: 20130110
  5. ROGAINE [Concomitant]
     Active Substance: MINOXIDIL
     Dosage: UNK
     Route: 065
     Dates: start: 20060101
  6. TAXOTERE [Suspect]
     Active Substance: DOCETAXEL
     Dosage: 158.2 MG, Q3W
     Route: 042
     Dates: start: 20130423, end: 20130423
  7. INSULIN [Concomitant]
     Active Substance: INSULIN NOS
     Dosage: UNK
     Route: 065
  8. SENSIPAR [Concomitant]
     Active Substance: CINACALCET HYDROCHLORIDE
     Route: 065

REACTIONS (2)
  - Alopecia [Not Recovered/Not Resolved]
  - Psychological trauma [Unknown]

NARRATIVE: CASE EVENT DATE: 20131101
